FAERS Safety Report 5097010-0 (Version None)
Quarter: 2006Q3

REPORT INFORMATION
  Report Type: 
  Country: None (occurrence: None)
  Receive Date: 20060906
  Receipt Date: 20060831
  Transmission Date: 20061208
  Serious: Yes (Life-Threatening)
  Sender: FDA-Public Use
  Company Number: PHBS2006DK13259

PATIENT
  Age: 48 Year

DRUGS (1)
  1. DIOVAN [Suspect]
     Dosage: 80 MG/DAY
     Dates: start: 19980101, end: 19981201

REACTIONS (4)
  - CONSTIPATION [None]
  - DRUG TOLERANCE DECREASED [None]
  - HYPOGLYCAEMIA [None]
  - METABOLIC DISORDER [None]
